FAERS Safety Report 4300942-1 (Version None)
Quarter: 2004Q1

REPORT INFORMATION
  Report Type: 
  Country: None (occurrence: None)
  Receive Date: 20040219
  Receipt Date: 20040211
  Transmission Date: 20041129
  Serious: Yes (Other)
  Sender: FDA-Public Use
  Company Number: 2004198894GB

PATIENT
  Age: 19 Year
  Sex: Female

DRUGS (2)
  1. DALACIN T         (CLINDAMYCIN) LOTION, [Suspect]
     Indication: ACNE
     Dosage: QD, TOPICAL
     Route: 061
     Dates: start: 20040108, end: 20040121
  2. BENZOYL PEROXIDE           (BENZOYL PEROXIDE) 5% [Suspect]
     Indication: ACNE
     Dosage: QD, TOPICAL
     Route: 061
     Dates: start: 20040108, end: 20040121

REACTIONS (2)
  - DERMATITIS ALLERGIC [None]
  - PERIORBITAL OEDEMA [None]
